FAERS Safety Report 8458719-1 (Version None)
Quarter: 2012Q2

REPORT INFORMATION
  Report Type: 
  Country: None (occurrence: None)
  Receive Date: 20120615
  Receipt Date: 20120531
  Transmission Date: 20120825
  Serious: Yes (Death, Hospitalization, Other)
  Sender: FDA-Public Use
  Company Number: JP-2011-13136

PATIENT
  Age: 83 Year
  Sex: Male
  Weight: 46 kg

DRUGS (12)
  1. ALLOPURINOL [Concomitant]
  2. LIPOVAS (SIMVASTATIN) TABLET [Concomitant]
  3. WARFARIN SODIUM [Concomitant]
  4. TRICHLORMETHIAZIDE [Suspect]
     Indication: PLEURAL EFFUSION
     Dosage: 2 MG MILLIGRAM(S), QD, ORAL
     Route: 048
     Dates: start: 20101215, end: 20111214
  5. TRICHLORMETHIAZIDE [Suspect]
     Indication: CARDIAC FAILURE CONGESTIVE
     Dosage: 2 MG MILLIGRAM(S), QD, ORAL
     Route: 048
     Dates: start: 20101215, end: 20111214
  6. LASIX [Suspect]
     Indication: CARDIAC FAILURE CONGESTIVE
     Dosage: 40 MG MILLIGRAM(S), QD, ORAL
     Route: 048
     Dates: start: 20110808, end: 20111214
  7. LASIX [Suspect]
     Indication: PLEURAL EFFUSION
     Dosage: 40 MG MILLIGRAM(S), QD, ORAL
     Route: 048
     Dates: start: 20110808, end: 20111214
  8. CARVEDILOL [Concomitant]
  9. SAMSCA [Suspect]
     Indication: CARDIAC FAILURE CONGESTIVE
     Dosage: 7.5 MG MILLIGRAM(S), BID, ORAL
     Route: 048
     Dates: start: 20111207, end: 20111214
  10. SAMSCA [Suspect]
     Indication: PLEURAL EFFUSION
     Dosage: 7.5 MG MILLIGRAM(S), BID, ORAL
     Route: 048
     Dates: start: 20111207, end: 20111214
  11. EPLERENONE [Suspect]
     Indication: PLEURAL EFFUSION
     Dosage: 50 MG MILLIGRAM(S), QD, ORAL
     Route: 048
     Dates: start: 20110808, end: 20111214
  12. EPLERENONE [Suspect]
     Indication: CARDIAC FAILURE CONGESTIVE
     Dosage: 50 MG MILLIGRAM(S), QD, ORAL
     Route: 048
     Dates: start: 20110808, end: 20111214

REACTIONS (6)
  - MARASMUS [None]
  - LOSS OF CONSCIOUSNESS [None]
  - PNEUMONIA ASPIRATION [None]
  - DEHYDRATION [None]
  - HYPERNATRAEMIA [None]
  - BLOOD UREA INCREASED [None]
